FAERS Safety Report 17974583 (Version 1)
Quarter: 2020Q3

REPORT INFORMATION
  Report Type: Report from Study
  Country: BR (occurrence: BR)
  Receive Date: 20200702
  Receipt Date: 20200702
  Transmission Date: 20201103
  Serious: Yes (Other)
  Sender: FDA-Public Use
  Company Number: NVSC2020BR185127

PATIENT
  Sex: Male

DRUGS (1)
  1. ONBRIZE [Suspect]
     Active Substance: INDACATEROL MALEATE
     Indication: PRODUCT USED FOR UNKNOWN INDICATION
     Dosage: UNK,150 CAPSULES
     Route: 050

REACTIONS (2)
  - Peripheral artery occlusion [Unknown]
  - Peripheral vascular disorder [Unknown]
